FAERS Safety Report 19414435 (Version 3)
Quarter: 2022Q2

REPORT INFORMATION
  Report Type: Other
  Country: SK (occurrence: SK)
  Receive Date: 20210615
  Receipt Date: 20220510
  Transmission Date: 20220721
  Serious: Yes (Other)
  Sender: FDA-Public Use
  Company Number: SK-CELLTRION HEALTHCARE HUNGARY KFT-2021SK007368

PATIENT

DRUGS (2)
  1. RITUXIMAB [Suspect]
     Active Substance: RITUXIMAB
     Indication: Diffuse large B-cell lymphoma
     Dosage: COMPLETED 6 CYCLES OF R-CHOP CHEMOTHERAPY
     Route: 041
  2. CYCLOPHOSPHAMIDE\DOXORUBICIN\PREDNISONE\VINCRISTINE [Suspect]
     Active Substance: CYCLOPHOSPHAMIDE\DOXORUBICIN\PREDNISONE\VINCRISTINE
     Indication: Diffuse large B-cell lymphoma
     Dosage: COMPLETED 6 CYCLES OF R-CHOP CHEMOTHERAPY
     Route: 065

REACTIONS (5)
  - Polyneuropathy [Unknown]
  - Paraparesis [Unknown]
  - Pneumonia [Unknown]
  - Diffuse large B-cell lymphoma recurrent [Unknown]
  - Disease progression [Recovered/Resolved]
